FAERS Safety Report 6590822-3 (Version None)
Quarter: 2010Q1

REPORT INFORMATION
  Report Type: 
  Country: None (occurrence: None)
  Receive Date: 20100212
  Receipt Date: 20090603
  Transmission Date: 20100710
  Serious: Yes (Other)
  Sender: FDA-Public Use
  Company Number: 2009US-24638

PATIENT
  Age: 40 Year
  Sex: Female

DRUGS (1)
  1. VERAPAMIL [Suspect]
     Indication: INTRACRANIAL PRESSURE INCREASED

REACTIONS (2)
  - BLOOD PRESSURE DECREASED [None]
  - OFF LABEL USE [None]
